FAERS Safety Report 6861509-4 (Version None)
Quarter: 2010Q3

REPORT INFORMATION
  Report Type: 
  Country: None (occurrence: None)
  Receive Date: 20100720
  Receipt Date: 20100720
  Transmission Date: 20110219
  Serious: Yes (Other)
  Sender: FDA-Public Use
  Company Number: None

PATIENT
  Age: 62 Year
  Sex: Female
  Weight: 93.8946 kg

DRUGS (6)
  1. COZAAR [Suspect]
     Indication: DIABETES MELLITUS
     Dosage: 1/2 TABLET DAILY PO
     Route: 048
     Dates: start: 20100115, end: 20100214
  2. COZAAR [Suspect]
     Indication: PROPHYLAXIS
     Dosage: 1/2 TABLET DAILY PO
     Route: 048
     Dates: start: 20100115, end: 20100214
  3. COZAAR [Suspect]
     Indication: RENAL DISORDER
     Dosage: 1/2 TABLET DAILY PO
     Route: 048
     Dates: start: 20100115, end: 20100214
  4. COZAAR [Suspect]
     Indication: DIABETES MELLITUS
     Dosage: 1/2 TABLET DAILY PO
     Route: 048
     Dates: start: 20100219, end: 20100318
  5. COZAAR [Suspect]
     Indication: PROPHYLAXIS
     Dosage: 1/2 TABLET DAILY PO
     Route: 048
     Dates: start: 20100219, end: 20100318
  6. COZAAR [Suspect]
     Indication: RENAL DISORDER
     Dosage: 1/2 TABLET DAILY PO
     Route: 048
     Dates: start: 20100219, end: 20100318

REACTIONS (4)
  - FORMICATION [None]
  - MIDDLE INSOMNIA [None]
  - PHOTOPSIA [None]
  - PRURITUS [None]
